FAERS Safety Report 15844567 (Version 2)
Quarter: 2019Q1

REPORT INFORMATION
  Report Type: Report from Study
  Country: CA (occurrence: CA)
  Receive Date: 20190118
  Receipt Date: 20190122
  Transmission Date: 20190417
  Serious: Yes (Hospitalization)
  Sender: FDA-Public Use
  Company Number: PHHO2018CA013207

PATIENT
  Age: 63 Year
  Sex: Female
  Weight: 65 kg

DRUGS (17)
  1. CALCIUM CHLORIDE. [Concomitant]
     Active Substance: CALCIUM CHLORIDE
     Indication: PROPHYLAXIS
     Dosage: 500 MG, TID
     Route: 048
     Dates: start: 2016
  2. METOCLOPRAMIDE. [Concomitant]
     Active Substance: METOCLOPRAMIDE
     Indication: PROPHYLAXIS OF NAUSEA AND VOMITING
     Dosage: 10 MG, PRN
     Route: 048
     Dates: start: 201701
  3. ACETAMINOPHEN. [Concomitant]
     Active Substance: ACETAMINOPHEN
     Indication: HEADACHE
     Dosage: 500 MG, PRN
     Route: 048
     Dates: start: 2015
  4. COD LIVER OIL [Concomitant]
     Active Substance: COD LIVER OIL
     Indication: SUPPLEMENTATION THERAPY
     Dosage: 1 UNK, UNK
     Route: 048
     Dates: start: 20180207
  5. LEE011 [Suspect]
     Active Substance: RIBOCICLIB
     Dosage: 600 MG, QD
     Route: 048
     Dates: start: 20180308, end: 20180328
  6. LEE011 [Suspect]
     Active Substance: RIBOCICLIB
     Dosage: 600 MG, QD
     Route: 048
     Dates: start: 20180828, end: 20181210
  7. ASPIRIN. [Concomitant]
     Active Substance: ASPIRIN
     Indication: HEADACHE
     Dosage: PRN
     Route: 048
     Dates: start: 20180523, end: 20180523
  8. LORAZEPAM. [Concomitant]
     Active Substance: LORAZEPAM
     Indication: INSOMNIA
     Dosage: 0.5 MG, PRN
     Route: 048
     Dates: start: 2015
  9. ALREX [Concomitant]
     Active Substance: LOTEPREDNOL ETABONATE
     Indication: EYE INFLAMMATION
     Dosage: 1 GTT, TID
     Route: 050
     Dates: start: 20171127, end: 20171220
  10. ZOPICLONE [Concomitant]
     Active Substance: ZOPICLONE
     Indication: INSOMNIA
     Dosage: 5 MG, PRN
     Route: 048
     Dates: start: 201701
  11. VITAMIN D3 [Concomitant]
     Active Substance: CHOLECALCIFEROL
     Indication: SUPPLEMENTATION THERAPY
     Dosage: UNK UNK, QD
     Route: 048
     Dates: start: 201701
  12. LEE011 [Suspect]
     Active Substance: RIBOCICLIB
     Dosage: 600 MG, QD
     Route: 048
     Dates: start: 20180410, end: 20180430
  13. LETROZOLE. [Suspect]
     Active Substance: LETROZOLE
     Indication: BREAST CANCER
     Dosage: 2.5 MG, QD
     Route: 048
     Dates: start: 20171110
  14. LEVOFLOXACIN. [Concomitant]
     Active Substance: LEVOFLOXACIN
     Indication: PYREXIA
     Dosage: 250 MG, UNK
     Route: 048
     Dates: start: 20181212, end: 20181212
  15. ZOLEDRONIC ACID [Concomitant]
     Active Substance: ZOLEDRONIC ACID
     Indication: OSTEOPOROSIS PROPHYLAXIS
     Dosage: 4 MG, UNK
     Route: 042
     Dates: start: 20170131
  16. LEE011 [Suspect]
     Active Substance: RIBOCICLIB
     Indication: BREAST CANCER
     Dosage: 600 MG, QD
     Route: 048
     Dates: start: 20171110, end: 20181210
  17. LEE011 [Suspect]
     Active Substance: RIBOCICLIB
     Dosage: 600 MG, QD
     Route: 048
     Dates: start: 20171212, end: 20180101

REACTIONS (2)
  - Febrile neutropenia [Recovered/Resolved]
  - Opportunistic infection [Recovered/Resolved]

NARRATIVE: CASE EVENT DATE: 20181212
